FAERS Safety Report 9878348 (Version 1)
Quarter: 2014Q1

REPORT INFORMATION
  Report Type: Spontaneous
  Country: US (occurrence: US)
  Receive Date: 20140206
  Receipt Date: 20140206
  Transmission Date: 20141002
  Serious: No
  Sender: FDA-Public Use
  Company Number: US-ALLERGAN-1311132US

PATIENT
  Age: 37 Year
  Sex: Female

DRUGS (2)
  1. BOTOX [Suspect]
     Indication: SKIN WRINKLING
     Dosage: UNK, SINGLE
     Route: 030
     Dates: start: 20130722, end: 20130722
  2. BOTOX [Suspect]
     Indication: SKIN WRINKLING

REACTIONS (3)
  - Oropharyngeal pain [Recovering/Resolving]
  - Influenza like illness [Recovering/Resolving]
  - Abdominal discomfort [Recovering/Resolving]
